FAERS Safety Report 7451217-3 (Version None)
Quarter: 2011Q2

REPORT INFORMATION
  Report Type: 
  Country: None (occurrence: None)
  Receive Date: 20110502
  Receipt Date: 20110429
  Transmission Date: 20111010
  Serious: Yes (Other)
  Sender: FDA-Public Use
  Company Number: NL-ABBOTT-10P-114-0684553-00

PATIENT
  Sex: Female
  Weight: 54 kg

DRUGS (4)
  1. LUCRIN 11.25 MG [Suspect]
     Indication: BREAST CANCER
     Route: 058
     Dates: start: 20100527
  2. CALCIUM CARBONATE [Concomitant]
     Indication: OSTEOPOROSIS PROPHYLAXIS
     Dosage: 1000MG CA
     Route: 048
     Dates: start: 20100201
  3. HERCEPTIN [Concomitant]
     Indication: PRODUCT USED FOR UNKNOWN INDICATION
     Route: 042
     Dates: start: 20100301
  4. TAMOXIFEN CITRATE [Concomitant]
     Indication: BREAST CANCER
     Route: 048
     Dates: start: 20100901

REACTIONS (2)
  - HOT FLUSH [None]
  - INJECTION SITE NODULE [None]
